FAERS Safety Report 7586390-X (Version None)
Quarter: 2011Q3

REPORT INFORMATION
  Report Type: 
  Country: None (occurrence: None)
  Receive Date: 20110701
  Receipt Date: 20110624
  Transmission Date: 20111222
  Serious: Yes (Other)
  Sender: FDA-Public Use
  Company Number: A0932939A

PATIENT
  Sex: Female

DRUGS (1)
  1. LAMICTAL [Suspect]
     Indication: BIPOLAR DISORDER
     Dosage: 100MG PER DAY
     Route: 048

REACTIONS (7)
  - PYREXIA [None]
  - BLISTER [None]
  - TONGUE BLISTERING [None]
  - PRURITUS [None]
  - RASH MACULO-PAPULAR [None]
  - LYMPHATIC DISORDER [None]
  - HEPATIC ENZYME INCREASED [None]
